FAERS Safety Report 5730254-0 (Version None)
Quarter: 2008Q2

REPORT INFORMATION
  Report Type: 
  Country: None (occurrence: None)
  Receive Date: 20080505
  Receipt Date: 20080505
  Transmission Date: 20081010
  Serious: Yes (Hospitalization)
  Sender: FDA-Public Use
  Company Number: None

PATIENT
  Age: 71 Year
  Sex: Male

DRUGS (1)
  1. OXCARBAZEPINE 600MG NEXGEN-ASCEND- [Suspect]
     Dosage: 1 BID PO
     Route: 048
     Dates: start: 20080201, end: 20080410

REACTIONS (2)
  - HEPATITIS [None]
  - THERAPEUTIC RESPONSE UNEXPECTED WITH DRUG SUBSTITUTION [None]
